FAERS Safety Report 13249187 (Version 1)
Quarter: 2017Q1

REPORT INFORMATION
  Report Type: Spontaneous
  Country: US (occurrence: US)
  Receive Date: 20170218
  Receipt Date: 20170218
  Transmission Date: 20170428
  Serious: No
  Sender: FDA-Public Use
  Company Number: US-ALLERGAN-1654725US

PATIENT
  Sex: Male

DRUGS (2)
  1. RESTASIS [Suspect]
     Active Substance: CYCLOSPORINE
     Indication: EYE IRRITATION
  2. RESTASIS [Suspect]
     Active Substance: CYCLOSPORINE
     Indication: DRY EYE
     Dosage: UNK
     Route: 047
     Dates: start: 2015

REACTIONS (4)
  - Eye irritation [Not Recovered/Not Resolved]
  - Excessive eye blinking [Not Recovered/Not Resolved]
  - Asthenopia [Not Recovered/Not Resolved]
  - Eye pruritus [Not Recovered/Not Resolved]
